FAERS Safety Report 8987523 (Version 5)
Quarter: 2014Q3

REPORT INFORMATION
  Report Type: Report from Study
  Country: DE (occurrence: DE)
  Receive Date: 20121227
  Receipt Date: 20140821
  Transmission Date: 20150326
  Serious: Yes (Hospitalization, Other)
  Sender: FDA-Public Use
  Company Number: PHHY2012DE119144

PATIENT
  Sex: Male
  Weight: 104 kg

DRUGS (10)
  1. AMN107 [Suspect]
     Active Substance: NILOTINIB
     Dosage: UNK UKN, UNK
  2. MAGNESIUM VERLA [Concomitant]
     Active Substance: MAGNESIUM
     Dates: start: 20121218
  3. MUCOFALK [Concomitant]
     Dates: start: 20130312
  4. TENSOFLUX [Concomitant]
     Indication: HYPERTENSION
     Dosage: 5 MG, DAY
     Route: 048
     Dates: start: 20121129
  5. AMN107 [Suspect]
     Active Substance: NILOTINIB
     Indication: CHRONIC MYELOID LEUKAEMIA
     Dosage: 600 MG,DAILY
     Route: 048
     Dates: start: 20120912, end: 20130312
  6. RAMIPRIL. [Concomitant]
     Active Substance: RAMIPRIL
     Indication: HYPERTENSION
     Dosage: 5 MG OR 10 MG PER DAY
     Dates: start: 20100503
  7. LACTOSE [Concomitant]
     Active Substance: LACTOSE
     Dates: start: 20130312
  8. DULCOLAX [Concomitant]
     Active Substance: BISACODYL OR DOCUSATE SODIUM
     Dates: start: 20121215, end: 20121220
  9. AMLODIPIN [Concomitant]
     Active Substance: AMLODIPINE BESYLATE
     Indication: HYPERTENSION
     Dosage: 5 MG, DAY
     Route: 048
     Dates: start: 20121204
  10. TENSOFLUX [Concomitant]
     Dosage: 5 MG, UNK
     Route: 048
     Dates: start: 20121204

REACTIONS (10)
  - Proctalgia [Recovered/Resolved]
  - Anal fissure [Recovered/Resolved]
  - Haemorrhoidal haemorrhage [Recovered/Resolved]
  - Fatigue [Not Recovered/Not Resolved]
  - Abdominal pain upper [Recovered/Resolved]
  - Atrial fibrillation [Not Recovered/Not Resolved]
  - Constipation [Not Recovered/Not Resolved]
  - Hypertension [Not Recovered/Not Resolved]
  - Gastrointestinal hypomotility [Not Recovered/Not Resolved]
  - Faecaloma [Recovered/Resolved]

NARRATIVE: CASE EVENT DATE: 20120912
